FAERS Safety Report 18379429 (Version 1)
Quarter: 2020Q4

REPORT INFORMATION
  Report Type: Spontaneous
  Country: CN (occurrence: CN)
  Receive Date: 20201014
  Receipt Date: 20201014
  Transmission Date: 20210114
  Serious: Yes (Death, Other)
  Sender: FDA-Public Use
  Company Number: CN-LUPIN PHARMACEUTICALS INC.-2020-07389

PATIENT
  Weight: 5.6 kg

DRUGS (1)
  1. CEFUROXIME. [Suspect]
     Active Substance: CEFUROXIME
     Indication: LISTERIOSIS
     Dosage: UNK
     Route: 064

REACTIONS (4)
  - Stillbirth [Fatal]
  - Foetal distress syndrome [Unknown]
  - Foetal hypokinesia [Unknown]
  - Foetal exposure during pregnancy [Unknown]
